FAERS Safety Report 7865916-2 (Version None)
Quarter: 2011Q4

REPORT INFORMATION
  Report Type: 
  Country: None (occurrence: None)
  Receive Date: 20111028
  Receipt Date: 20110321
  Transmission Date: 20120403
  Serious: No
  Sender: FDA-Public Use
  Company Number: US-GLAXOSMITHKLINE-A0919208A

PATIENT
  Sex: Male

DRUGS (4)
  1. ZYRTEC [Concomitant]
  2. ANTI-CHOLESTEROL MEDICATION [Concomitant]
  3. ADVAIR DISKUS 100/50 [Suspect]
     Indication: ASTHMA
     Dosage: 1PUFF TWICE PER DAY
     Route: 055
     Dates: start: 20020101
  4. SYNTHROID [Concomitant]

REACTIONS (4)
  - CHEST DISCOMFORT [None]
  - DRUG INEFFECTIVE [None]
  - MIDDLE INSOMNIA [None]
  - DYSPHONIA [None]
